FAERS Safety Report 22007439 (Version 1)
Quarter: 2023Q1

REPORT INFORMATION
  Report Type: Report from Study
  Country: US (occurrence: US)
  Receive Date: 20230218
  Receipt Date: 20230218
  Transmission Date: 20230417
  Serious: Yes (Other)
  Sender: FDA-Public Use
  Company Number: US-ABBVIE-4310589

PATIENT
  Sex: Female

DRUGS (1)
  1. HUMIRA [Suspect]
     Active Substance: ADALIMUMAB
     Indication: Crohn^s disease
     Dosage: START DATE: 2014
     Route: 058

REACTIONS (7)
  - Hernia [Unknown]
  - Infection [Unknown]
  - Medical device site pain [Unknown]
  - Memory impairment [Unknown]
  - Impaired work ability [Unknown]
  - Therapeutic product effect decreased [Unknown]
  - Stoma site reaction [Unknown]

NARRATIVE: CASE EVENT DATE: 20160101
